FAERS Safety Report 17050599 (Version 1)
Quarter: 2019Q4

REPORT INFORMATION
  Report Type: Spontaneous
  Country: US (occurrence: US)
  Receive Date: 20191119
  Receipt Date: 20191119
  Transmission Date: 20200122
  Serious: No
  Sender: FDA-Public Use
  Company Number: US-B.I. PHARMACEUTICALS,INC./RIDGEFIELD-2019-US-113572

PATIENT
  Age: 41 Year
  Sex: Male

DRUGS (2)
  1. SPIRIVA RESPIMAT [Suspect]
     Active Substance: TIOTROPIUM BROMIDE
     Indication: ANGIOPATHY
  2. SPIRIVA RESPIMAT [Suspect]
     Active Substance: TIOTROPIUM BROMIDE
     Indication: OFF LABEL USE
     Dosage: 2 PUFFS OF SPIRIVA RESPIMAT 1.25 MCG IN THE EVENING BEFORE BED
     Route: 065

REACTIONS (2)
  - Off label use [Unknown]
  - Angiopathy [Not Recovered/Not Resolved]
